FAERS Safety Report 9702624 (Version 3)
Quarter: 2014Q2

REPORT INFORMATION
  Report Type: Spontaneous
  Country: US (occurrence: US)
  Receive Date: 20131121
  Receipt Date: 20140613
  Transmission Date: 20141212
  Serious: Yes (Hospitalization)
  Sender: FDA-Public Use
  Company Number: US-BAXTER-2013BAX045529

PATIENT
  Sex: Male

DRUGS (1)
  1. DIANEAL LOW CALCIUM [Suspect]
     Indication: RENAL FAILURE CHRONIC
     Route: 033
     Dates: start: 201308

REACTIONS (4)
  - Abdominal hernia [Recovering/Resolving]
  - Condition aggravated [Recovering/Resolving]
  - Inguinal hernia [Recovering/Resolving]
  - Hernia [Recovered/Resolved]
